FAERS Safety Report 5156040-0 (Version None)
Quarter: 2006Q4

REPORT INFORMATION
  Report Type: 
  Country: None (occurrence: None)
  Receive Date: 20061114
  Receipt Date: 20061106
  Transmission Date: 20070319
  Serious: Yes (Other)
  Sender: FDA-Public Use
  Company Number: 2448

PATIENT
  Age: 60 Year
  Sex: Female

DRUGS (7)
  1. AVINZA [Suspect]
     Dosage: 30 MG DAILY PO
     Route: 048
     Dates: start: 20051201, end: 20060713
  2. ACETAMINOPHEN AND HYDROCODONE BITARTRATE [Concomitant]
  3. ALENDRONATE SODIUM [Concomitant]
  4. DIAZEPAM [Concomitant]
  5. LIDOCAINE [Concomitant]
  6. PAROXETINE HYDROCHLORIDE [Concomitant]
  7. ZOLDIPEM TARTRATE [Concomitant]

REACTIONS (3)
  - MUSCLE SPASTICITY [None]
  - NERVOUS SYSTEM DISORDER [None]
  - SENSORY LOSS [None]
